FAERS Safety Report 24107588 (Version 1)
Quarter: 2024Q3

REPORT INFORMATION
  Report Type: Spontaneous
  Country: US (occurrence: US)
  Receive Date: 20240718
  Receipt Date: 20240718
  Transmission Date: 20241017
  Serious: No
  Sender: TARO
  Company Number: US-TARO PHARMACEUTICALS USA INC.-2023TAR00681

PATIENT

DRUGS (3)
  1. AMMONIUM LACTATE [Suspect]
     Active Substance: AMMONIUM LACTATE
     Indication: Skin burning sensation
     Dosage: UNK, TWICE, TOPICAL TO HAND AND LEG,THE SIZE OF 2 QUARTERS
     Route: 061
     Dates: start: 202305
  2. AMMONIUM LACTATE [Suspect]
     Active Substance: AMMONIUM LACTATE
     Indication: Skin irritation
  3. GABAPENTIN [Concomitant]
     Active Substance: GABAPENTIN
     Indication: Product used for unknown indication
     Dosage: UNK
     Route: 065

REACTIONS (1)
  - Disease progression [Not Recovered/Not Resolved]

NARRATIVE: CASE EVENT DATE: 20230501
